FAERS Safety Report 9048613 (Version 1)
Quarter: 2013Q1

REPORT INFORMATION
  Report Type: Spontaneous
  Country: US (occurrence: None)
  Receive Date: 20130130
  Receipt Date: 20130130
  Transmission Date: 20140127
  Serious: Yes (Hospitalization)
  Sender: FDA-Public Use
  Company Number: None

PATIENT
  Age: 62 Year
  Sex: Female
  Weight: 161 kg

DRUGS (7)
  1. WARFARIN [Suspect]
     Indication: ATRIAL FIBRILLATION
     Dosage: CHRONIC
     Route: 048
  2. COMBIVENT [Concomitant]
  3. DIGOXIN [Concomitant]
  4. CARDIZEM [Concomitant]
  5. FLONASE [Concomitant]
  6. ATIVAN [Concomitant]
  7. PREDNISONE [Concomitant]

REACTIONS (6)
  - Fall [None]
  - Anaemia [None]
  - Traumatic haematoma [None]
  - Nephrolithiasis [None]
  - Hydronephrosis [None]
  - Urinary tract infection [None]
